FAERS Safety Report 13722480 (Version 1)
Quarter: 2017Q3

REPORT INFORMATION
  Report Type: Spontaneous
  Country: RU (occurrence: RU)
  Receive Date: 20170706
  Receipt Date: 20170706
  Transmission Date: 20171127
  Serious: No
  Sender: FDA-Public Use
  Company Number: RU-B. BRAUN MEDICAL INC.-2023004

PATIENT
  Age: 26 Year
  Sex: Female

DRUGS (8)
  1. PYRIDOXINE HYDROCHLORIDE. [Concomitant]
     Active Substance: PYRIDOXINE HYDROCHLORIDE
     Route: 030
     Dates: start: 20170410, end: 20170410
  2. NICOTINIC ACID [Concomitant]
     Active Substance: NIACIN
     Route: 030
     Dates: start: 20170410, end: 20170410
  3. SODIUM CHLORIDE. [Suspect]
     Active Substance: SODIUM CHLORIDE
     Indication: DRUG THERAPY
     Dates: start: 20170410, end: 20170410
  4. PARACETAMOL [Suspect]
     Active Substance: ACETAMINOPHEN
     Route: 042
  5. SUPRASTIN [Suspect]
     Active Substance: CHLOROPYRAMINE HYDROCHLORIDE
     Route: 042
  6. ASCORBIC ACID. [Concomitant]
     Active Substance: ASCORBIC ACID
     Route: 030
     Dates: start: 20170410, end: 20170410
  7. SODIUM THIOSULFATE [Concomitant]
     Active Substance: SODIUM THIOSULFATE
     Route: 042
     Dates: start: 20170410, end: 20170410
  8. 5% GLUCOSE [Suspect]
     Active Substance: DEXTROSE
     Route: 042

REACTIONS (3)
  - Back pain [None]
  - Body temperature increased [None]
  - Chills [None]
